FAERS Safety Report 5333373-6 (Version None)
Quarter: 2007Q2

REPORT INFORMATION
  Report Type: 
  Country: None (occurrence: None)
  Receive Date: 20070524
  Receipt Date: 20070521
  Transmission Date: 20071010
  Serious: Yes (Life-Threatening)
  Sender: FDA-Public Use
  Company Number: FR-BRISTOL-MYERS SQUIBB COMPANY-13782636

PATIENT
  Age: 48 Year
  Sex: Female

DRUGS (4)
  1. ENDOXAN [Suspect]
     Indication: SYSTEMIC LUPUS ERYTHEMATOSUS
     Route: 042
     Dates: start: 20040814, end: 20041117
  2. CORTANCYL [Suspect]
     Indication: SYSTEMIC LUPUS ERYTHEMATOSUS
     Route: 048
     Dates: start: 20041101
  3. SOLU-MEDROL [Suspect]
     Indication: SYSTEMIC LUPUS ERYTHEMATOSUS
     Route: 042
  4. CELLCEPT [Suspect]
     Indication: SYSTEMIC LUPUS ERYTHEMATOSUS
     Route: 048
     Dates: start: 20041117, end: 20051015

REACTIONS (2)
  - JC VIRUS INFECTION [None]
  - PROGRESSIVE MULTIFOCAL LEUKOENCEPHALOPATHY [None]
